FAERS Safety Report 6968292-2 (Version None)
Quarter: 2010Q3

REPORT INFORMATION
  Report Type: 
  Country: None (occurrence: None)
  Receive Date: 20100907
  Receipt Date: 20100830
  Transmission Date: 20110219
  Serious: Yes (Disabling)
  Sender: FDA-Public Use
  Company Number: FR-ROCHE-720155

PATIENT
  Sex: Male
  Weight: 67 kg

DRUGS (2)
  1. PEGASYS [Suspect]
     Indication: HEPATITIS C
     Route: 058
     Dates: start: 20080901, end: 20100324
  2. COPEGUS [Concomitant]
     Dates: end: 20100324

REACTIONS (1)
  - VIITH NERVE PARALYSIS [None]
